FAERS Safety Report 5533680-8 (Version None)
Quarter: 2007Q4

REPORT INFORMATION
  Report Type: 
  Country: None (occurrence: None)
  Receive Date: 20071204
  Receipt Date: 20071126
  Transmission Date: 20080405
  Serious: Yes (Death, Hospitalization, Other)
  Sender: FDA-Public Use
  Company Number: TR-ELI_LILLY_AND_COMPANY-TR200711005929

PATIENT
  Age: 68 Year
  Sex: Female

DRUGS (2)
  1. HUMULIN 70/30 [Suspect]
     Dosage: 12 UNITS/MORNING AND 10 UNITS/EVENING
     Route: 058
     Dates: start: 20040101
  2. HUMULIN 70/30 [Suspect]
     Dosage: 10 U, EACH EVENING
     Route: 058
     Dates: start: 20040101

REACTIONS (5)
  - DIABETIC COMA [None]
  - FALL [None]
  - HIP FRACTURE [None]
  - PARALYSIS [None]
  - RESPIRATORY FAILURE [None]
